FAERS Safety Report 9822535 (Version 1)
Quarter: 2014Q1

REPORT INFORMATION
  Report Type: Spontaneous
  Country: US (occurrence: US)
  Receive Date: 20140116
  Receipt Date: 20140116
  Transmission Date: 20141002
  Serious: Yes (Other)
  Sender: FDA-Public Use
  Company Number: PHEH2014US001169

PATIENT
  Sex: Female

DRUGS (2)
  1. OCTREOTIDE [Suspect]
     Dosage: UNK UKN, UNK
     Route: 065
  2. OCTREOTIDE [Suspect]
     Dosage: UNK UKN, UNK
     Route: 065
     Dates: start: 201209

REACTIONS (3)
  - Cholecystitis infective [Unknown]
  - Diabetes mellitus [Unknown]
  - Therapeutic response decreased [Unknown]
